FAERS Safety Report 5510352-7 (Version None)
Quarter: 2007Q4

REPORT INFORMATION
  Report Type: 
  Country: None (occurrence: None)
  Receive Date: 20071108
  Receipt Date: 20071029
  Transmission Date: 20080405
  Serious: Yes (Other)
  Sender: FDA-Public Use
  Company Number: BR-PFIZER INC-2007091971

PATIENT
  Sex: Female

DRUGS (5)
  1. LIPITOR [Suspect]
     Indication: BLOOD TRIGLYCERIDES
     Route: 048
  2. LIPITOR [Suspect]
     Indication: LIPID METABOLISM DISORDER
  3. EUTHYROX [Concomitant]
     Route: 048
  4. OXCORD [Concomitant]
     Route: 048
  5. SUSTRATE [Concomitant]
     Route: 048

REACTIONS (2)
  - CAROTID ARTERY DISEASE [None]
  - THYROID OPERATION [None]
